FAERS Safety Report 13507107 (Version 1)
Quarter: 2017Q2

REPORT INFORMATION
  Report Type: Spontaneous
  Country: US (occurrence: US)
  Receive Date: 20170502
  Receipt Date: 20170502
  Transmission Date: 20170830
  Serious: Yes (Other)
  Sender: FDA-Public Use
  Company Number: None

PATIENT
  Age: 43 Year
  Sex: Male
  Weight: 81 kg

DRUGS (4)
  1. XTAMPZA ER [Suspect]
     Active Substance: OXYCODONE
     Indication: BACK PAIN
     Dosage: ?          QUANTITY:120 CAPSULE(S);?
     Route: 048
     Dates: start: 20161101, end: 20170501
  2. MARANGA HERB ROOT [Concomitant]
  3. OXYCODONE IR [Concomitant]
     Active Substance: OXYCODONE
  4. XTAMPZA ER [Suspect]
     Active Substance: OXYCODONE
     Indication: BONE NEOPLASM
     Dosage: ?          QUANTITY:120 CAPSULE(S);?
     Route: 048
     Dates: start: 20161101, end: 20170501

REACTIONS (6)
  - Drooling [None]
  - Aphonia [None]
  - Laryngitis [None]
  - Stomatitis [None]
  - Abscess oral [None]
  - Somnolence [None]

NARRATIVE: CASE EVENT DATE: 20170201
